FAERS Safety Report 13150961 (Version 2)
Quarter: 2017Q1

REPORT INFORMATION
  Report Type: Spontaneous
  Country: US (occurrence: US)
  Receive Date: 20170124
  Receipt Date: 20170124
  Transmission Date: 20170428
  Serious: Yes (Other)
  Sender: FDA-Public Use
  Company Number: US-AMGEN-USASP2017008431

PATIENT
  Age: 57 Year
  Sex: Male

DRUGS (1)
  1. NEULASTA [Suspect]
     Active Substance: PEGFILGRASTIM
     Indication: MYELODYSPLASTIC SYNDROME
     Dosage: 6 MG, Q2WK
     Route: 065
     Dates: start: 201612

REACTIONS (7)
  - Bone pain [Recovering/Resolving]
  - Off label use [Unknown]
  - Arthropathy [Unknown]
  - White blood cell count decreased [Unknown]
  - Pain in jaw [Recovered/Resolved]
  - Blood calcium increased [Unknown]
  - Post procedural infection [Unknown]

NARRATIVE: CASE EVENT DATE: 201612
